FAERS Safety Report 18377271 (Version 1)
Quarter: 2020Q4

REPORT INFORMATION
  Report Type: Report from Study
  Country: IN (occurrence: IN)
  Receive Date: 20201013
  Receipt Date: 20201013
  Transmission Date: 20210114
  Serious: Yes (Death)
  Sender: FDA-Public Use
  Company Number: IN-MYLANLABS-2020M1086431

PATIENT
  Age: 70 Year
  Sex: Female

DRUGS (2)
  1. CISPLATIN. [Suspect]
     Active Substance: CISPLATIN
     Indication: OROPHARYNGEAL CANCER
  2. CISPLATIN. [Suspect]
     Active Substance: CISPLATIN
     Indication: HEAD AND NECK CANCER
     Dosage: 100 MILLIGRAM/SQ. METER, Q3W, RECEIVED FOR 3 CYCLES
     Route: 065

REACTIONS (5)
  - Sepsis [Fatal]
  - Mucosal inflammation [Fatal]
  - Dysphagia [Fatal]
  - Aspiration [Fatal]
  - Toxicity to various agents [Fatal]
